FAERS Safety Report 10080753 (Version 1)
Quarter: 2014Q2

REPORT INFORMATION
  Report Type: Spontaneous
  Country: PK (occurrence: PK)
  Receive Date: 20140416
  Receipt Date: 20140416
  Transmission Date: 20141212
  Serious: No
  Sender: FDA-Public Use
  Company Number: PHHY2014PK041765

PATIENT
  Age: 55 Year
  Sex: Male

DRUGS (3)
  1. TASIGNA [Suspect]
     Indication: CHRONIC MYELOID LEUKAEMIA
     Dosage: 800 MG, QD
     Route: 048
     Dates: start: 20140311
  2. ASCARD [Concomitant]
     Indication: PLATELET AGGREGATION
     Dates: start: 20140402, end: 20140405
  3. CEFACLOR [Concomitant]
     Dates: start: 20140402, end: 20140405

REACTIONS (3)
  - Hyperchlorhydria [Recovered/Resolved]
  - Vomiting [Recovered/Resolved]
  - Pyrexia [Recovered/Resolved]
